FAERS Safety Report 7522417-9 (Version None)
Quarter: 2011Q2

REPORT INFORMATION
  Report Type: 
  Country: None (occurrence: None)
  Receive Date: 20110603
  Receipt Date: 20110601
  Transmission Date: 20111010
  Serious: Yes (Hospitalization)
  Sender: FDA-Public Use
  Company Number: FR-SANOFI-AVENTIS-2011SA034215

PATIENT
  Age: 59 Year
  Sex: Male

DRUGS (17)
  1. LOPERAMIDE [Concomitant]
  2. ASPIRIN [Concomitant]
  3. ACETAMINOPHEN [Concomitant]
  4. MORPHINE SULFATE [Concomitant]
  5. FLUOROURACIL [Suspect]
     Dates: start: 20110321
  6. TAXOTERE [Suspect]
     Dates: start: 20110321, end: 20110321
  7. ACETAMINOPHEN W/ CODEINE [Concomitant]
  8. ATARAX [Concomitant]
  9. CLONAZEPAM [Concomitant]
     Indication: AGITATION
  10. CISPLATIN [Suspect]
     Indication: HYPOPHARYNGEAL CANCER
     Dates: start: 20110217, end: 20110217
  11. CISPLATIN [Suspect]
     Dates: start: 20110411, end: 20110412
  12. VALIUM [Concomitant]
  13. TAXOTERE [Suspect]
     Indication: HYPOPHARYNGEAL CANCER
     Dates: start: 20110217, end: 20110217
  14. TAXOTERE [Suspect]
     Dates: start: 20110411, end: 20110411
  15. FLUOROURACIL [Suspect]
     Indication: HYPOPHARYNGEAL CANCER
     Dates: start: 20110217
  16. FLUOROURACIL [Suspect]
     Dates: start: 20110411
  17. CISPLATIN [Suspect]
     Dates: start: 20110321, end: 20110321

REACTIONS (4)
  - ENCEPHALOPATHY [None]
  - APHASIA [None]
  - CONFUSIONAL STATE [None]
  - EPILEPSY [None]
